FAERS Safety Report 5483050-6 (Version None)
Quarter: 2007Q4

REPORT INFORMATION
  Report Type: 
  Country: None (occurrence: None)
  Receive Date: 20071005
  Receipt Date: 20061113
  Transmission Date: 20080405
  Serious: Yes (Hospitalization)
  Sender: FDA-Public Use
  Company Number: 6027451

PATIENT
  Age: 62 Year
  Sex: Male

DRUGS (1)
  1. SERTRALINE [Suspect]
     Indication: MAJOR DEPRESSION

REACTIONS (1)
  - TOXIC EPIDERMAL NECROLYSIS [None]
